FAERS Safety Report 24208402 (Version 1)
Quarter: 2024Q3

REPORT INFORMATION
  Report Type: Spontaneous
  Country: US (occurrence: US)
  Receive Date: 20240814
  Receipt Date: 20240814
  Transmission Date: 20241017
  Serious: No
  Sender: TEVA
  Company Number: US-TEVA-VS-3228300

PATIENT
  Sex: Female

DRUGS (1)
  1. METOPROLOL SUCCINATE [Suspect]
     Active Substance: METOPROLOL SUCCINATE
     Indication: Anxiety
     Route: 048

REACTIONS (3)
  - Arthropod bite [Unknown]
  - Food allergy [Not Recovered/Not Resolved]
  - Product use in unapproved indication [Unknown]
